FAERS Safety Report 9892580 (Version 1)
Quarter: 2014Q1

REPORT INFORMATION
  Report Type: Spontaneous
  Country: FR (occurrence: FR)
  Receive Date: 20140212
  Receipt Date: 20140212
  Transmission Date: 20141002
  Serious: Yes (Other)
  Sender: FDA-Public Use
  Company Number: ALCN2014FR001063

PATIENT
  Sex: Male

DRUGS (1)
  1. AZOPT [Suspect]
     Dosage: UNK
     Route: 047
     Dates: end: 20140206

REACTIONS (3)
  - Depression [Unknown]
  - Palpitations [Unknown]
  - Hypertension [Unknown]
